FAERS Safety Report 9385918 (Version 1)
Quarter: 2013Q3

REPORT INFORMATION
  Report Type: Report from Study
  Country: US (occurrence: US)
  Receive Date: 20130705
  Receipt Date: 20130705
  Transmission Date: 20140515
  Serious: Yes (Other)
  Sender: FDA-Public Use
  Company Number: US-ABBOTT-13P-163-1115309-00

PATIENT
  Age: 27 Year
  Sex: Female

DRUGS (5)
  1. NORVIR [Suspect]
     Indication: ANTIRETROVIRAL THERAPY
     Route: 048
     Dates: start: 20121105
  2. TRUVADA [Suspect]
     Indication: ANTIRETROVIRAL THERAPY
     Route: 048
     Dates: start: 20121105
  3. REYATAZ [Suspect]
     Indication: ANTIRETROVIRAL THERAPY
     Route: 048
     Dates: start: 20121105
  4. RETROVIR [Suspect]
     Indication: ANTIRETROVIRAL THERAPY
     Route: 042
     Dates: start: 20130514, end: 20130514
  5. RETROVIR [Suspect]
     Route: 042
     Dates: start: 20130514, end: 20130514

REACTIONS (1)
  - Alpha 1 foetoprotein abnormal [Unknown]
